FAERS Safety Report 14975098 (Version 3)
Quarter: 2018Q3

REPORT INFORMATION
  Report Type: Report from Study
  Country: NL (occurrence: NL)
  Receive Date: 20180605
  Receipt Date: 20180816
  Transmission Date: 20181010
  Serious: Yes (Hospitalization)
  Sender: FDA-Public Use
  Company Number: NL-SA-2018SA146555

PATIENT
  Age: 3 Year
  Sex: Female

DRUGS (27)
  1. CLEMASTINE [Concomitant]
     Active Substance: CLEMASTINE
     Indication: ALLERGY PROPHYLAXIS
     Dosage: 1.5 MG, QD
     Dates: start: 20180427, end: 20180518
  2. BUSULFAN. [Concomitant]
     Active Substance: BUSULFAN
     Dosage: 110 MG, QD
     Route: 042
     Dates: start: 20180421, end: 20180424
  3. FOSCARNET [Concomitant]
     Active Substance: FOSCARNET
     Indication: THERAPEUTIC PROCEDURE
     Dosage: 3200 MG, QD
     Route: 042
     Dates: start: 20180508, end: 20180513
  4. SANDIMMUNE [Concomitant]
     Active Substance: CYCLOSPORINE
     Indication: THERAPEUTIC PROCEDURE
     Dosage: 180 MG, QD
     Route: 042
     Dates: start: 20180511, end: 20180514
  5. FLUDARABINE [Concomitant]
     Active Substance: FLUDARABINE PHOSPHATE
     Dosage: 27.99 MG, QD
     Route: 042
     Dates: start: 20180421, end: 20180424
  6. AMLODIPINE [Concomitant]
     Active Substance: AMLODIPINE BESYLATE
     Indication: THERAPEUTIC PROCEDURE
     Dosage: 10 MG, QD
     Route: 048
     Dates: start: 20180511, end: 20180518
  7. BETAMETHASONE. [Concomitant]
     Active Substance: BETAMETHASONE
     Indication: THERAPEUTIC PROCEDURE
     Dosage: 1 MG/G, QD
     Route: 003
     Dates: start: 20180508, end: 20180518
  8. GRANISETRON [Concomitant]
     Active Substance: GRANISETRON
     Indication: THERAPEUTIC PROCEDURE
     Dosage: 1.4 MG, QD
     Route: 042
     Dates: start: 20180424, end: 20180517
  9. KALIUMCHLORIDE [Concomitant]
     Indication: THERAPEUTIC PROCEDURE
     Dosage: 18 MMOL, QD
     Route: 048
     Dates: start: 20180513, end: 20180516
  10. CEFAZOLINE [CEFAZOLIN] [Concomitant]
     Indication: THERAPEUTIC PROCEDURE
     Dosage: 1600 MG, QD
     Route: 042
     Dates: start: 20180516, end: 20180517
  11. SPIRONOLACTONE. [Concomitant]
     Active Substance: SPIRONOLACTONE
     Indication: THERAPEUTIC PROCEDURE
     Dosage: 25 MG, QD
     Route: 048
     Dates: start: 20180516, end: 20180521
  12. ANTI?THYMOCYTE GLOBULIN (RABBIT) NOS [Suspect]
     Active Substance: LAPINE T-LYMPHOCYTE IMMUNE GLOBULIN
     Dosage: 46.25 MG, QD
     Dates: start: 20180418, end: 20180421
  13. DIMETINDENE [Concomitant]
     Active Substance: DIMETHINDENE
     Indication: THERAPEUTIC PROCEDURE
     Dosage: 1.8 MG, QD
     Route: 048
     Dates: start: 20180510, end: 20180518
  14. METHYLPREDNISOLONE. [Concomitant]
     Active Substance: METHYLPREDNISOLONE
     Indication: THERAPEUTIC PROCEDURE
     Dosage: 200 MG, QD
     Route: 042
     Dates: start: 20180511, end: 20180513
  15. PARACETAMOL [Concomitant]
     Active Substance: ACETAMINOPHEN
     Indication: THERAPEUTIC PROCEDURE
     Dosage: 1020 MG, QD
     Route: 042
     Dates: start: 20180507, end: 20180522
  16. CHOLECALCIFEROL [Concomitant]
     Active Substance: CHOLECALCIFEROL
     Indication: THERAPEUTIC PROCEDURE
     Dosage: 800 UNK
     Route: 048
     Dates: start: 20180501, end: 20180520
  17. FILGRASTIM [Concomitant]
     Active Substance: FILGRASTIM
     Indication: THERAPEUTIC PROCEDURE
     Dosage: 180 UG
     Route: 042
     Dates: start: 20180506, end: 20180519
  18. FUROSEMIDE. [Concomitant]
     Active Substance: FUROSEMIDE
     Indication: THERAPEUTIC PROCEDURE
     Dosage: 30 MG, QD
     Route: 042
     Dates: start: 20180512, end: 20180515
  19. MAGNESIUM CITRATE. [Concomitant]
     Active Substance: MAGNESIUM CITRATE
     Indication: THERAPEUTIC PROCEDURE
     Dosage: 376 MG, QD
     Route: 048
     Dates: start: 20180512, end: 20180514
  20. TRAMADOL. [Concomitant]
     Active Substance: TRAMADOL
     Indication: THERAPEUTIC PROCEDURE
     Dosage: 100 MG, QD
     Route: 042
     Dates: start: 20180506, end: 20180517
  21. NEORAL [Concomitant]
     Active Substance: CYCLOSPORINE
     Indication: THERAPEUTIC PROCEDURE
     Dosage: 600 MG, QD
     Route: 048
     Dates: start: 20180517, end: 20180521
  22. PREDNISOLONE. [Concomitant]
     Active Substance: PREDNISOLONE
     Indication: ALLERGY PROPHYLAXIS
     Dosage: 35 MG, QD
     Dates: start: 20180421, end: 20180421
  23. PREDNISOLONE. [Concomitant]
     Active Substance: PREDNISOLONE
     Indication: GRAFT VERSUS HOST DISEASE
     Dosage: 36 UNK
     Dates: start: 20180513, end: 20180522
  24. AMBISOME [Concomitant]
     Active Substance: AMPHOTERICIN B
     Indication: THERAPEUTIC PROCEDURE
     Dosage: 90 MG, QW
     Route: 042
     Dates: start: 20180423
  25. NANOGRAM [Concomitant]
     Indication: THERAPEUTIC PROCEDURE
     Dosage: 7500 MG, QD
     Route: 042
     Dates: start: 20180515, end: 20180516
  26. ESOMEPRAZOLE [Concomitant]
     Active Substance: ESOMEPRAZOLE
     Dosage: 10 MG, QD
     Dates: start: 20180418, end: 20180517
  27. ENALAPRIL [Concomitant]
     Active Substance: ENALAPRIL
     Indication: THERAPEUTIC PROCEDURE
     Dosage: 4 MG, QD
     Route: 048
     Dates: start: 20180515, end: 20180519

REACTIONS (4)
  - Infection [Recovered/Resolved]
  - Pyrexia [Unknown]
  - Infestation [Recovered/Resolved]
  - Diarrhoea [Unknown]

NARRATIVE: CASE EVENT DATE: 20180519
